FAERS Safety Report 21027866 (Version 1)
Quarter: 2022Q2

REPORT INFORMATION
  Report Type: Spontaneous
  Country: US (occurrence: US)
  Receive Date: 20220630
  Receipt Date: 20220630
  Transmission Date: 20220721
  Serious: No
  Sender: FDA-Public Use
  Company Number: US-KARYOPHARM-2022KPT000621

PATIENT

DRUGS (22)
  1. XPOVIO [Suspect]
     Active Substance: SELINEXOR
     Indication: Plasma cell myeloma
     Dosage: 100 MG, WEEKLY
     Route: 048
     Dates: start: 20220527
  2. ATORVASTATIN CALCIUM [Concomitant]
     Active Substance: ATORVASTATIN CALCIUM
  3. ATOVAQUONE [Concomitant]
     Active Substance: ATOVAQUONE
  4. BORTEZOMIB [Concomitant]
     Active Substance: BORTEZOMIB
  5. BRIMONIDINE TARTRATE [Concomitant]
     Active Substance: BRIMONIDINE TARTRATE
  6. DEXAMETHASONE [Concomitant]
     Active Substance: DEXAMETHASONE
  7. DORZOLAMIDE HYDROCHLORIDE [Concomitant]
     Active Substance: DORZOLAMIDE HYDROCHLORIDE
  8. FOLIC ACID [Concomitant]
     Active Substance: FOLIC ACID
  9. GABAPENTIN [Concomitant]
     Active Substance: GABAPENTIN
  10. HYDROMORPHONE [Concomitant]
     Active Substance: HYDROMORPHONE
  11. LACTULOSE [Concomitant]
     Active Substance: LACTULOSE
  12. LIDOCAINE [Concomitant]
     Active Substance: LIDOCAINE
  13. LIDOCAINE AND PRILOCAINE [Concomitant]
     Active Substance: LIDOCAINE\PRILOCAINE
  14. LISINOPRIL [Concomitant]
     Active Substance: LISINOPRIL
  15. LORAZEPAM [Concomitant]
     Active Substance: LORAZEPAM
  16. METHADONE HYDROCHLORIDE [Concomitant]
     Active Substance: METHADONE HYDROCHLORIDE
  17. METHYLPHENIDATE [Concomitant]
     Active Substance: METHYLPHENIDATE
  18. OMEPRAZOLE [Concomitant]
     Active Substance: OMEPRAZOLE
  19. PROCHLORPERAZINE MALEATE [Concomitant]
     Active Substance: PROCHLORPERAZINE MALEATE
  20. TRAZODONE [Concomitant]
     Active Substance: TRAZODONE HYDROCHLORIDE
  21. VALACYCLOVIR HYDROCHLORIDE [Concomitant]
     Active Substance: VALACYCLOVIR HYDROCHLORIDE
  22. LANTUS [Concomitant]
     Active Substance: INSULIN GLARGINE

REACTIONS (6)
  - Depression [Not Recovered/Not Resolved]
  - Eye haemorrhage [Unknown]
  - Intraocular pressure increased [Unknown]
  - Bone pain [Unknown]
  - Chest pain [Unknown]
  - Fatigue [Unknown]

NARRATIVE: CASE EVENT DATE: 20220101
